FAERS Safety Report 24012987 (Version 1)
Quarter: 2024Q2

REPORT INFORMATION
  Report Type: Spontaneous
  Country: BR (occurrence: BR)
  Receive Date: 20240626
  Receipt Date: 20240626
  Transmission Date: 20240716
  Serious: Yes (Life-Threatening, Hospitalization)
  Sender: FDA-Public Use
  Company Number: BR-Accord-431622

PATIENT
  Age: 69 Year
  Sex: Male

DRUGS (1)
  1. METHOTREXATE [Suspect]
     Active Substance: METHOTREXATE
     Indication: Psoriasis
     Dosage: HE HAD BEEN SELF-ADMINISTERING A DOSAGE OF 2.5 MG, THREE PILLS
     Route: 048

REACTIONS (7)
  - Stomatitis [Unknown]
  - Dehydration [Unknown]
  - Incorrect dosage administered [Unknown]
  - Myelosuppression [Unknown]
  - Acute kidney injury [Unknown]
  - Hepatic failure [Unknown]
  - Skin necrosis [Unknown]
